FAERS Safety Report 8419549-X (Version None)
Quarter: 2012Q2

REPORT INFORMATION
  Report Type: 
  Country: None (occurrence: None)
  Receive Date: 20120607
  Receipt Date: 20120604
  Transmission Date: 20120825
  Serious: No
  Sender: FDA-Public Use
  Company Number: US-ASTRAZENECA-2012SE28304

PATIENT
  Age: 68 Year
  Sex: Female

DRUGS (4)
  1. OPIUM [Concomitant]
  2. CREON [Concomitant]
  3. SYNTHROID [Concomitant]
  4. CAPRELSA [Suspect]
     Indication: THYROID CANCER
     Route: 048

REACTIONS (7)
  - EPISTAXIS [None]
  - DIZZINESS [None]
  - STOMATITIS [None]
  - WEIGHT INCREASED [None]
  - JOINT SWELLING [None]
  - HOT FLUSH [None]
  - DYSPNOEA [None]
